FAERS Safety Report 16158860 (Version 1)
Quarter: 2019Q2

REPORT INFORMATION
  Report Type: Report from Study
  Country: AU (occurrence: AU)
  Receive Date: 20190404
  Receipt Date: 20190404
  Transmission Date: 20190711
  Serious: Yes (Hospitalization, Other)
  Sender: FDA-Public Use
  Company Number: AU-BRISTOL-MYERS SQUIBB COMPANY-BMS-2019-025973

PATIENT
  Age: 72 Year
  Sex: Female
  Weight: 84.4 kg

DRUGS (19)
  1. NIVOLUMAB [Suspect]
     Active Substance: NIVOLUMAB
     Indication: GENITAL NEOPLASM MALIGNANT FEMALE
     Route: 065
  2. MORPHINE [Concomitant]
     Active Substance: MORPHINE
     Indication: INFUSION RELATED REACTION
     Dosage: UNK
     Route: 065
     Dates: start: 20190219, end: 20190219
  3. PROMETHAZINE [Concomitant]
     Active Substance: PROMETHAZINE\PROMETHAZINE HYDROCHLORIDE
     Indication: PRODUCT USED FOR UNKNOWN INDICATION
     Dosage: UNK
     Route: 065
     Dates: start: 20190219, end: 20190219
  4. RANITIDINE. [Concomitant]
     Active Substance: RANITIDINE
     Indication: INFUSION RELATED REACTION
     Dosage: UNK
     Route: 048
     Dates: start: 20190216
  5. LORATADIN [Concomitant]
     Active Substance: LORATADINE
     Indication: INFUSION RELATED REACTION
     Dosage: UNK
     Route: 065
     Dates: start: 20190216
  6. THYROXINE [Concomitant]
     Active Substance: LEVOTHYROXINE
     Indication: HYPOTHYROIDISM
     Dosage: UNK
     Route: 065
     Dates: start: 20190131
  7. IPILIMUMAB [Suspect]
     Active Substance: IPILIMUMAB
     Indication: GASTROINTESTINAL NEOPLASM
     Dosage: 83 MILLIGRAM
     Route: 042
     Dates: start: 20181218
  8. METOPROLOL. [Concomitant]
     Active Substance: METOPROLOL
     Indication: ACUTE MYOCARDIAL INFARCTION
     Dosage: UNK
     Route: 065
     Dates: start: 2016
  9. HYDROCORTISONE ACETATE. [Concomitant]
     Active Substance: HYDROCORTISONE ACETATE
     Indication: RASH MACULO-PAPULAR
     Dosage: UNK
     Route: 061
     Dates: start: 20190122
  10. GANFORT [Concomitant]
     Active Substance: BIMATOPROST\TIMOLOL
     Indication: GLAUCOMA
     Dosage: UNK
     Route: 065
     Dates: start: 1989
  11. IPILIMUMAB [Suspect]
     Active Substance: IPILIMUMAB
     Indication: GENITAL NEOPLASM MALIGNANT FEMALE
     Route: 065
  12. HYDROCORTISONE. [Concomitant]
     Active Substance: HYDROCORTISONE
     Indication: INFUSION RELATED REACTION
     Dosage: UNK
     Route: 065
     Dates: start: 20190219, end: 20190219
  13. ASPIRIN                            /00002701/ [Concomitant]
     Active Substance: ASPIRIN
     Indication: ACUTE MYOCARDIAL INFARCTION
     Dosage: UNK
     Route: 065
     Dates: start: 2016
  14. IPILIMUMAB [Suspect]
     Active Substance: IPILIMUMAB
     Indication: NEUROENDOCRINE CARCINOMA
     Route: 065
  15. RAMIPRIL. [Concomitant]
     Active Substance: RAMIPRIL
     Indication: ACUTE MYOCARDIAL INFARCTION
     Dosage: UNK
     Route: 065
     Dates: start: 2016
  16. RANITIDINE. [Concomitant]
     Active Substance: RANITIDINE
     Indication: PRODUCT USED FOR UNKNOWN INDICATION
     Dosage: UNK
     Route: 042
     Dates: start: 20190130, end: 20190219
  17. NIVOLUMAB [Suspect]
     Active Substance: NIVOLUMAB
     Indication: GASTROINTESTINAL NEOPLASM
     Dosage: 249 MILLIGRAM
     Route: 042
     Dates: start: 20181218
  18. ENDONE [Concomitant]
     Active Substance: OXYCODONE HYDROCHLORIDE
     Indication: ABDOMINAL PAIN UPPER
     Dosage: UNK
     Route: 065
     Dates: start: 20180204
  19. NIVOLUMAB [Suspect]
     Active Substance: NIVOLUMAB
     Indication: NEUROENDOCRINE CARCINOMA
     Route: 065

REACTIONS (2)
  - Adrenal insufficiency [Recovered/Resolved]
  - Hypomania [Recovered/Resolved]

NARRATIVE: CASE EVENT DATE: 20190314
